FAERS Safety Report 19721748 (Version 1)
Quarter: 2021Q3

REPORT INFORMATION
  Report Type: Spontaneous
  Country: US (occurrence: US)
  Receive Date: 20210819
  Receipt Date: 20210819
  Transmission Date: 20211014
  Serious: Yes (Other)
  Sender: FDA-Public Use
  Company Number: US-AMGEN-USASP2021125614

PATIENT
  Age: 66 Year
  Sex: Female

DRUGS (10)
  1. TRASTUZUMAB. [Suspect]
     Active Substance: TRASTUZUMAB
     Dosage: 6 MG/KG FOR SUBSEQUENT DOSES EVERY 3 WEEKS
     Route: 042
  2. DOCETAXEL. [Concomitant]
     Active Substance: DOCETAXEL
  3. CERITINIB [Concomitant]
     Active Substance: CERITINIB
  4. BRIGATINIB [Concomitant]
     Active Substance: BRIGATINIB
  5. ALECTINIB. [Concomitant]
     Active Substance: ALECTINIB
  6. PEMETREXED. [Concomitant]
     Active Substance: PEMETREXED
  7. ATEZOLIZUMAB. [Concomitant]
     Active Substance: ATEZOLIZUMAB
  8. VINORELBINE [Concomitant]
     Active Substance: VINORELBINE TARTRATE
  9. TRASTUZUMAB. [Suspect]
     Active Substance: TRASTUZUMAB
     Indication: BREAST CANCER
     Dosage: 8 MG/KG
     Route: 042
     Dates: start: 2020
  10. CARBOPLATIN. [Concomitant]
     Active Substance: CARBOPLATIN

REACTIONS (2)
  - Lung cancer metastatic [Unknown]
  - Breast cancer metastatic [Unknown]
